APPROVED DRUG PRODUCT: HYCAMTIN
Active Ingredient: TOPOTECAN HYDROCHLORIDE
Strength: EQ 4MG BASE/VIAL
Dosage Form/Route: INJECTABLE;INJECTION
Application: N020671 | Product #001 | TE Code: AP
Applicant: SANDOZ INC
Approved: May 28, 1996 | RLD: Yes | RS: Yes | Type: RX